FAERS Safety Report 9928169 (Version 3)
Quarter: 2014Q2

REPORT INFORMATION
  Report Type: Spontaneous
  Country: US (occurrence: US)
  Receive Date: 20140227
  Receipt Date: 20140404
  Transmission Date: 20141212
  Serious: Yes (Other)
  Sender: FDA-Public Use
  Company Number: US-BAYER-2014-027599

PATIENT
  Age: 84 Year
  Sex: Female
  Weight: 63 kg

DRUGS (7)
  1. BAYER EXTRA STRENGTH BACK + BODY PAIN [Suspect]
     Dosage: DOSE: 1-2
     Route: 048
  2. BAYER GENUINE ASPIRIN ORIGINAL STRENGTH [Suspect]
     Dosage: DOSE: 1-2
     Route: 048
  3. BAYER ADVANCED ASPIRIN EXTRA STRENGTH [Suspect]
     Dosage: DOSE: 1-2
     Route: 048
     Dates: start: 201301, end: 201306
  4. ALEVE LIQUID GELS [Suspect]
     Indication: BACK PAIN
     Dosage: 1 DF, QD
  5. ALEVE LIQUID GELS [Suspect]
     Indication: PAIN IN EXTREMITY
     Dosage: 1 DF, 3 DAYS OR MORE
  6. ALEVE LIQUID GELS [Suspect]
     Indication: BACK PAIN
     Dosage: 1 DF, EVERY OTHER WEEK
  7. ADVIL [Concomitant]

REACTIONS (3)
  - Gastric haemorrhage [Recovered/Resolved]
  - Haematochezia [Recovered/Resolved]
  - Rectal haemorrhage [Recovered/Resolved]
